FAERS Safety Report 6732316-8 (Version None)
Quarter: 2010Q2

REPORT INFORMATION
  Report Type: 
  Country: None (occurrence: None)
  Receive Date: 20100519
  Receipt Date: 20100504
  Transmission Date: 20101027
  Serious: Yes (Other)
  Sender: FDA-Public Use
  Company Number: AU-TYCO HEALTHCARE/MALLINCKRODT-T201001180

PATIENT

DRUGS (5)
  1. NALTREXONE HYDROCHLORIDE [Suspect]
     Indication: DRUG DETOXIFICATION
     Dosage: 50 MG ORAL AT THE END OF ANAESTHESIA
     Route: 048
  2. NALOXONE [Suspect]
     Indication: DRUG DETOXIFICATION
     Dosage: 12.4 MG IN 60 MINUTES
  3. NALOXONE [Suspect]
     Dosage: 0.8MG/HOUR OVERNIGHT
  4. METHOHEXITAL [Suspect]
     Indication: ANAESTHESIA
     Dosage: DOSE TO SUPPRESS REFLEXES
  5. PROPOFOL [Suspect]
     Indication: ANAESTHESIA
     Dosage: DOSE TO SUPPRESS REFLEXES

REACTIONS (1)
  - DELAYED RECOVERY FROM ANAESTHESIA [None]
